FAERS Safety Report 9796250 (Version 1)
Quarter: 2014Q1

REPORT INFORMATION
  Report Type: Spontaneous
  Country: AU (occurrence: AU)
  Receive Date: 20140103
  Receipt Date: 20140103
  Transmission Date: 20141002
  Serious: Yes (Other)
  Sender: FDA-Public Use
  Company Number: AU-JNJFOC-20140101038

PATIENT
  Age: 75 Year
  Sex: Female

DRUGS (4)
  1. XARELTO [Suspect]
     Indication: PRODUCT USED FOR UNKNOWN INDICATION
     Route: 048
     Dates: start: 20131218
  2. METOPROLOL TARTRATE [Concomitant]
     Route: 065
     Dates: start: 20131218
  3. METOPROLOL TARTRATE [Concomitant]
     Dosage: ONE TABLET IN THE MORNING AND ONE AT NIGHT
     Route: 065
  4. CALTRATE [Concomitant]
     Route: 065

REACTIONS (5)
  - Aortic aneurysm [Unknown]
  - Dysarthria [Not Recovered/Not Resolved]
  - Vision blurred [Not Recovered/Not Resolved]
  - Dizziness [Unknown]
  - Dizziness [Unknown]
